FAERS Safety Report 6552492-X (Version None)
Quarter: 2010Q1

REPORT INFORMATION
  Report Type: 
  Country: None (occurrence: None)
  Receive Date: 20100126
  Receipt Date: 20090210
  Transmission Date: 20100710
  Serious: Yes (Other)
  Sender: FDA-Public Use
  Company Number: BE-PFIZER INC-2009168832

PATIENT
  Age: 50 Year
  Sex: Female
  Weight: 69 kg

DRUGS (2)
  1. MEDROL [Suspect]
     Dosage: 32 MG, 1X/DAY
     Route: 048
     Dates: start: 20090122, end: 20090125
  2. CLARITHROMYCIN [Suspect]
     Indication: BRONCHITIS
     Dosage: 500 MG, 2X/DAY
     Route: 048
     Dates: start: 20090122, end: 20090125

REACTIONS (8)
  - AGEUSIA [None]
  - ANOSMIA [None]
  - BLADDER OBSTRUCTION [None]
  - CARDIAC DISORDER [None]
  - DEPRESSED LEVEL OF CONSCIOUSNESS [None]
  - INTESTINAL OBSTRUCTION [None]
  - LUNG DISORDER [None]
  - OBSTRUCTION GASTRIC [None]
